FAERS Safety Report 25942878 (Version 1)
Quarter: 2025Q4

REPORT INFORMATION
  Report Type: Spontaneous
  Country: US (occurrence: None)
  Receive Date: 20251018
  Receipt Date: 20251018
  Transmission Date: 20260118
  Serious: No
  Sender: FDA-CTU
  Company Number: None

PATIENT
  Sex: Female

DRUGS (4)
  1. DEVICE [Suspect]
     Active Substance: DEVICE
     Indication: Pulmonary arterial hypertension
     Dosage: OTHER FREQUENCY : CONTINUOUS;?
     Route: 042
     Dates: start: 20210326
  2. WINREVAIR [Suspect]
     Active Substance: SOTATERCEPT-CSRK
  3. OPSUMIT [Suspect]
     Active Substance: MACITENTAN
  4. TADALAFIL [Suspect]
     Active Substance: TADALAFIL

REACTIONS (5)
  - Device malfunction [None]
  - Device alarm issue [None]
  - Device information output issue [None]
  - Dyspnoea [None]
  - Device delivery system issue [None]
